FAERS Safety Report 5269738-0 (Version None)
Quarter: 2007Q1

REPORT INFORMATION
  Report Type: 
  Country: None (occurrence: None)
  Receive Date: 20070320
  Receipt Date: 20070309
  Transmission Date: 20070707
  Serious: Yes (Other)
  Sender: FDA-Public Use
  Company Number: BE-ROCHE-486534

PATIENT
  Age: 18 Year
  Sex: Female

DRUGS (3)
  1. ROACCUTANE [Suspect]
     Dosage: DOSAGE REGIMEN REPORTED AS DAILY.
     Route: 048
     Dates: start: 20070115, end: 20070309
  2. CONTRACEPTIVE DRUG NOS [Concomitant]
  3. MINOCYCLINE HCL [Concomitant]
     Indication: ACNE
     Dosage: STOP DATE REPORTED AS 2006.
     Route: 048
     Dates: start: 20060815

REACTIONS (2)
  - NO ADVERSE EFFECT [None]
  - PREGNANCY [None]
